FAERS Safety Report 20510282 (Version 1)
Quarter: 2022Q1

REPORT INFORMATION
  Report Type: Report from Study
  Country: CO (occurrence: CO)
  Receive Date: 20220224
  Receipt Date: 20220224
  Transmission Date: 20220423
  Serious: Yes (Other)
  Sender: FDA-Public Use
  Company Number: CO-ABBVIE-22K-036-4290688-00

PATIENT
  Age: 72 Year
  Sex: Male
  Weight: 73 kg

DRUGS (1)
  1. VENETOCLAX [Suspect]
     Active Substance: VENETOCLAX
     Indication: Acute myeloid leukaemia
     Route: 048
     Dates: start: 20220115

REACTIONS (1)
  - Haemorrhoids [Recovering/Resolving]

NARRATIVE: CASE EVENT DATE: 20220201
